FAERS Safety Report 4899703-4 (Version None)
Quarter: 2006Q1

REPORT INFORMATION
  Report Type: 
  Country: None (occurrence: None)
  Receive Date: 20060118
  Receipt Date: 20050606
  Transmission Date: 20060701
  Serious: Yes (Hospitalization)
  Sender: FDA-Public Use
  Company Number: 2005001062

PATIENT
  Age: 78 Year
  Sex: Female

DRUGS (1)
  1. TARCEVA [Suspect]
     Indication: NON-SMALL CELL LUNG CANCER
     Dosage: 150 MG (QD), ORAL
     Route: 048
     Dates: start: 20050510, end: 20050524

REACTIONS (8)
  - BLOOD BILIRUBIN INCREASED [None]
  - DEHYDRATION [None]
  - DIARRHOEA [None]
  - JAUNDICE [None]
  - MOUTH ULCERATION [None]
  - NAUSEA [None]
  - STOMATITIS [None]
  - VOMITING [None]
